FAERS Safety Report 5463988-6 (Version None)
Quarter: 2007Q3

REPORT INFORMATION
  Report Type: 
  Country: None (occurrence: None)
  Receive Date: 20070921
  Receipt Date: 20070917
  Transmission Date: 20080115
  Serious: Yes (Other)
  Sender: FDA-Public Use
  Company Number: PHFR2007GB02476

PATIENT
  Age: 52 Year
  Sex: Female
  Weight: 53.2 kg

DRUGS (6)
  1. TEGRETOL [Suspect]
     Indication: EPILEPSY
     Dosage: 400 MG, TID
     Route: 048
  2. FLUDARABINE PHOSPHATE [Suspect]
     Indication: CHRONIC LYMPHOCYTIC LEUKAEMIA
  3. CHOP [Suspect]
     Indication: LYMPHOMA
     Route: 042
  4. GRANISETRON  HCL [Suspect]
     Indication: LYMPHOMA
     Dosage: 3MG / DAY
     Route: 042
     Dates: start: 20070828
  5. CYCLIZINE [Suspect]
     Route: 042
  6. ZOFRAN [Suspect]
     Dosage: 8 MG, TID
     Route: 048

REACTIONS (2)
  - DRUG INTERACTION [None]
  - NAUSEA [None]
